FAERS Safety Report 8134736-6 (Version None)
Quarter: 2012Q1

REPORT INFORMATION
  Report Type: 
  Country: None (occurrence: None)
  Receive Date: 20120214
  Receipt Date: 20120208
  Transmission Date: 20120608
  Serious: Yes (Death)
  Sender: FDA-Public Use
  Company Number: US-PFIZER INC-2012035816

PATIENT
  Sex: Male

DRUGS (1)
  1. REVATIO [Suspect]
     Indication: PULMONARY HYPERTENSION
     Dosage: 20 MG, 1 3X/DAY
     Dates: start: 20100217, end: 20120120

REACTIONS (3)
  - DISEASE PROGRESSION [None]
  - CARDIAC DISORDER [None]
  - PULMONARY HYPERTENSION [None]
